FAERS Safety Report 7676886-4 (Version None)
Quarter: 2011Q3

REPORT INFORMATION
  Report Type: 
  Country: None (occurrence: None)
  Receive Date: 20110811
  Receipt Date: 20110808
  Transmission Date: 20111222
  Serious: Yes (Death, Other)
  Sender: FDA-Public Use
  Company Number: PHHY2011CA41975

PATIENT
  Sex: Male

DRUGS (2)
  1. CLOZAPINE [Suspect]
     Dates: start: 20081017
  2. CLOZAPINE [Suspect]
     Dosage: 125 MG, QHS
     Route: 048

REACTIONS (11)
  - PYREXIA [None]
  - CYSTITIS [None]
  - CORONARY ARTERY DISEASE [None]
  - DEATH [None]
  - LEFT VENTRICULAR DYSFUNCTION [None]
  - PSYCHIATRIC DECOMPENSATION [None]
  - FEBRILE INFECTION [None]
  - AGITATION [None]
  - CARDIAC ARREST [None]
  - ACUTE MYOCARDIAL INFARCTION [None]
  - URINARY TRACT INFECTION [None]
